FAERS Safety Report 24022500 (Version 1)
Quarter: 2024Q2

REPORT INFORMATION
  Report Type: Report from Study
  Country: US (occurrence: US)
  Receive Date: 20240627
  Receipt Date: 20240627
  Transmission Date: 20240716
  Serious: No
  Sender: FDA-Public Use
  Company Number: US-ROCHE-3552019

PATIENT
  Age: 71 Year

DRUGS (8)
  1. VABYSMO [Suspect]
     Active Substance: FARICIMAB\FARICIMAB-SVOA
     Indication: Retinal neovascularisation
     Route: 065
  2. AMLODIPINE [Concomitant]
     Active Substance: AMLODIPINE BESYLATE
  3. ASPIRIN [Concomitant]
     Active Substance: ASPIRIN
  4. ATORVASTATIN [Concomitant]
     Active Substance: ATORVASTATIN
  5. DOXEPIN [Concomitant]
     Active Substance: DOXEPIN
  6. METOPROLOL [Concomitant]
     Active Substance: METOPROLOL
  7. OMEPRAZOLE [Concomitant]
     Active Substance: DONEPEZIL HYDROCHLORIDE\OMEPRAZOLE\OMEPRAZOLE MAGNESIUM
  8. PREDNISONE [Concomitant]
     Active Substance: PREDNISONE

REACTIONS (2)
  - Off label use [Unknown]
  - No adverse event [Unknown]
